FAERS Safety Report 4296058-3 (Version None)
Quarter: 2004Q1

REPORT INFORMATION
  Report Type: 
  Country: None (occurrence: None)
  Receive Date: 20040212
  Receipt Date: 20040203
  Transmission Date: 20041129
  Serious: Yes (Hospitalization)
  Sender: FDA-Public Use
  Company Number: 2004197815FR

PATIENT
  Age: 67 Year
  Sex: Male

DRUGS (3)
  1. MEDROL [Suspect]
     Dosage: 4 MG, QD, ORAL
     Route: 048
     Dates: start: 20000901
  2. ARAVA [Suspect]
     Dosage: 20 MG, QD, ORAL
     Route: 048
     Dates: start: 20000901
  3. ` [Concomitant]

REACTIONS (1)
  - PNEUMONIA LEGIONELLA [None]
